FAERS Safety Report 19260409 (Version 9)
Quarter: 2021Q4

REPORT INFORMATION
  Report Type: Report from Study
  Country: BR (occurrence: BR)
  Receive Date: 20210514
  Receipt Date: 20211027
  Transmission Date: 20220303
  Serious: Yes (Hospitalization, Other)
  Sender: FDA-Public Use
  Company Number: BR-BRISTOL-MYERS SQUIBB COMPANY-BMS-2021-045421

PATIENT
  Age: 67 Year
  Sex: Male

DRUGS (6)
  1. BEMPEGALDESLEUKIN [Suspect]
     Active Substance: BEMPEGALDESLEUKIN
     Indication: Renal cell carcinoma
     Dosage: 0.62 MILLIGRAM, Q3WK
     Route: 042
     Dates: start: 20200330, end: 20210430
  2. NIVOLUMAB [Suspect]
     Active Substance: NIVOLUMAB
     Indication: Renal cell carcinoma
     Dosage: 360 MILLIGRAM, Q3WK
     Route: 042
     Dates: start: 20200330, end: 20210430
  3. PURAN [Concomitant]
     Active Substance: LEVOTHYROXINE SODIUM
     Indication: Hypothyroidism
     Dosage: 50 MICROGRAM, QD
     Route: 048
     Dates: start: 20200418
  4. PREDNISONE [Concomitant]
     Active Substance: PREDNISONE
     Indication: Blood disorder prophylaxis
     Dosage: 10 MILLIGRAM, QD
     Route: 048
     Dates: start: 20210421, end: 20210423
  5. PREDNISONE [Concomitant]
     Active Substance: PREDNISONE
     Dosage: 5 MILLIGRAM, QD
     Route: 048
     Dates: start: 20210424, end: 20210426
  6. INSULIN NOS [Concomitant]
     Active Substance: INSULIN NOS
     Indication: Diabetes mellitus
     Dosage: 7 UNIT, PRN
     Route: 058
     Dates: start: 20210415, end: 20210430

REACTIONS (1)
  - Ischaemic stroke [Recovered/Resolved with Sequelae]

NARRATIVE: CASE EVENT DATE: 20210430
